FAERS Safety Report 8069549-7 (Version None)
Quarter: 2012Q1

REPORT INFORMATION
  Report Type: 
  Country: None (occurrence: None)
  Receive Date: 20120125
  Receipt Date: 20120113
  Transmission Date: 20120608
  Serious: Yes (Life-Threatening, Hospitalization, Disabling, Other)
  Sender: FDA-Public Use
  Company Number: CZ-AMGEN-CZECT2011052924

PATIENT
  Age: 59 Year
  Sex: Male

DRUGS (5)
  1. ENBREL [Suspect]
     Indication: RHEUMATOID ARTHRITIS
     Dosage: 50 MG, WEEKLY
     Route: 058
     Dates: start: 20090216, end: 20110615
  2. PREDNISONE [Concomitant]
     Dosage: 15 MG, 1X/DAY
     Dates: start: 20060201
  3. SULFASALAZINE [Concomitant]
     Dosage: 2 G, 1X/DAY
     Dates: start: 20080504
  4. DICLOFENAC [Concomitant]
     Dosage: 150 MG, 1X/DAY
     Dates: start: 20080806
  5. ENBREL [Suspect]
     Dosage: 50 MG, WEEKLY
     Route: 058
     Dates: start: 20090216, end: 20110615

REACTIONS (5)
  - ABDOMINAL ABSCESS [None]
  - ENTEROCUTANEOUS FISTULA [None]
  - SUBILEUS [None]
  - DIVERTICULITIS [None]
  - INFECTIOUS PERITONITIS [None]
